FAERS Safety Report 8109368-6 (Version None)
Quarter: 2012Q1

REPORT INFORMATION
  Report Type: 
  Country: None (occurrence: None)
  Receive Date: 20120202
  Receipt Date: 20120109
  Transmission Date: 20120608
  Serious: No
  Sender: FDA-Public Use
  Company Number: US-AMGEN-USASP2012001361

PATIENT
  Age: 52 Year
  Sex: Female

DRUGS (2)
  1. ENBREL [Suspect]
     Indication: RHEUMATOID ARTHRITIS
     Dosage: 50 MG, QWK
     Dates: start: 20110915
  2. AZULFIDINE [Concomitant]
     Dosage: 4 MG, QD
     Dates: start: 20070101

REACTIONS (5)
  - INFLAMMATION [None]
  - PAIN IN EXTREMITY [None]
  - BURNING SENSATION [None]
  - ERYTHEMA [None]
  - PRURITUS [None]
